FAERS Safety Report 9521619 (Version 1)
Quarter: 2013Q1

REPORT INFORMATION
  Report Type: Spontaneous
  Country: US (occurrence: None)
  Receive Date: 20130305
  Receipt Date: 20130305
  Transmission Date: 20140127
  Serious: Yes (Other)
  Sender: FDA-Public Use
  Company Number: 163-21880-12073249

PATIENT
  Sex: Male

DRUGS (4)
  1. REVLIMID (LENALIDOMIDE) (CAPSULES) [Suspect]
     Indication: PLASMA CELL MYELOMA
     Route: 048
     Dates: start: 20100202, end: 201002
  2. PHOSPHATIDYLCHOLINE (PHOSPHATIDYL CHOLINE) [Concomitant]
  3. DANDELION ROOT (HERBAL PREPARATION) [Concomitant]
  4. ALPHA-LIPOIC ACID (THIOCTIC ACID) [Concomitant]

REACTIONS (1)
  - Pain in extremity [None]
